FAERS Safety Report 6100800-6 (Version None)
Quarter: 2009Q1

REPORT INFORMATION
  Report Type: 
  Country: None (occurrence: None)
  Receive Date: 20090303
  Receipt Date: 20090223
  Transmission Date: 20090719
  Serious: Yes (Other)
  Sender: FDA-Public Use
  Company Number: US-JNJCH-2009005387

PATIENT

DRUGS (1)
  1. BENGAY ULTRA STRENGTH [Suspect]
     Indication: PAIN IN EXTREMITY
     Dosage: TEXT:UNSPECIFIED 1 TIME
     Route: 061

REACTIONS (4)
  - APPLICATION SITE BURN [None]
  - APPLICATION SITE ERYTHEMA [None]
  - APPLICATION SITE IRRITATION [None]
  - PAIN [None]
